FAERS Safety Report 8166760-1 (Version None)
Quarter: 2012Q1

REPORT INFORMATION
  Report Type: 
  Country: None (occurrence: None)
  Receive Date: 20120227
  Receipt Date: 20120216
  Transmission Date: 20120608
  Serious: Yes (Other)
  Sender: FDA-Public Use
  Company Number: SI-MPIJNJ-2012-00492

PATIENT

DRUGS (8)
  1. FRAGMIN [Concomitant]
     Dosage: 7500 IU, UNK
     Route: 058
  2. VELCADE [Suspect]
     Indication: MULTIPLE MYELOMA
     Dosage: 1.3 MG/M2, UNK
     Route: 065
     Dates: start: 20101224, end: 20110621
  3. DEXAMETHASONE [Concomitant]
     Indication: MULTIPLE MYELOMA
     Dosage: 40 MG, UNK
  4. ATORIS                             /01326101/ [Concomitant]
     Dosage: 10 MG, UNK
     Route: 048
  5. TORSEMIDE [Concomitant]
     Dosage: 30 MG, UNK
     Route: 048
  6. AMLOPIN                            /00972401/ [Concomitant]
     Dosage: 10 MG, UNK
     Route: 048
  7. GLURENORM [Concomitant]
     Dosage: 2 MG, UNK
     Route: 048
  8. PROSTIDE [Concomitant]
     Dosage: 5 MG, UNK
     Route: 048

REACTIONS (1)
  - PANCYTOPENIA [None]
